FAERS Safety Report 17510057 (Version 1)
Quarter: 2020Q1

REPORT INFORMATION
  Report Type: Spontaneous
  Country: US (occurrence: US)
  Receive Date: 20200306
  Receipt Date: 20200306
  Transmission Date: 20200409
  Serious: Yes (Other)
  Sender: FDA-Public Use
  Company Number: None

PATIENT
  Age: 36 Year
  Sex: Female
  Weight: 52.65 kg

DRUGS (2)
  1. BUPRENORPHINE AND NALOXONE SUBLINGUAL FILM 8MG/2MG [Suspect]
     Active Substance: BUPRENORPHINE\NALOXONE
     Indication: DRUG DEPENDENCE
     Dosage: ?          QUANTITY:60 FILM;?
     Route: 060
     Dates: start: 20200229, end: 20200306
  2. SUBOXONE [Concomitant]
     Active Substance: BUPRENORPHINE HYDROCHLORIDE\NALOXONE HYDROCHLORIDE

REACTIONS (10)
  - Abdominal discomfort [None]
  - Pain [None]
  - Drug withdrawal syndrome [None]
  - Insomnia [None]
  - Hyperhidrosis [None]
  - Quality of life decreased [None]
  - Lacrimation increased [None]
  - Rhinorrhoea [None]
  - Headache [None]
  - Chills [None]

NARRATIVE: CASE EVENT DATE: 20200302
